FAERS Safety Report 4746568-7 (Version None)
Quarter: 2005Q3

REPORT INFORMATION
  Report Type: 
  Country: None (occurrence: None)
  Receive Date: 20050816
  Receipt Date: 20050816
  Transmission Date: 20060218
  Serious: Yes (Life-Threatening)
  Sender: FDA-Public Use
  Company Number: None

PATIENT
  Age: 71 Year
  Sex: Female
  Weight: 61.2356 kg

DRUGS (2)
  1. PROGRAF [Suspect]
     Indication: DERMATOMYOSITIS
     Dosage: 2 MG Q AM 3 MG Q HS
  2. PREDNISONE TAB [Concomitant]

REACTIONS (9)
  - ALPHA HAEMOLYTIC STREPTOCOCCAL INFECTION [None]
  - BODY TEMPERATURE INCREASED [None]
  - CELLULITIS [None]
  - DISORIENTATION [None]
  - FALL [None]
  - HYPOTENSION [None]
  - NAUSEA [None]
  - OXYGEN SATURATION DECREASED [None]
  - PYREXIA [None]
